FAERS Safety Report 6016239-8 (Version None)
Quarter: 2008Q4

REPORT INFORMATION
  Report Type: 
  Country: None (occurrence: None)
  Receive Date: 20081222
  Receipt Date: 20081216
  Transmission Date: 20090506
  Serious: Yes (Life-Threatening, Hospitalization, Disabling)
  Sender: FDA-Public Use
  Company Number: US-BRISTOL-MYERS SQUIBB COMPANY-14189534

PATIENT
  Age: 48 Year
  Sex: Male

DRUGS (2)
  1. ABILIFY [Suspect]
     Indication: PSYCHOTIC DISORDER
     Route: 048
     Dates: start: 20080206
  2. ABILIFY [Suspect]
     Indication: AFFECTIVE DISORDER
     Route: 048
     Dates: start: 20080206

REACTIONS (9)
  - ABASIA [None]
  - DYSARTHRIA [None]
  - DYSSTASIA [None]
  - MEMORY IMPAIRMENT [None]
  - PNEUMONIA [None]
  - READING DISORDER [None]
  - STUPOR [None]
  - TREMOR [None]
  - WEIGHT DECREASED [None]
